FAERS Safety Report 5881636-8 (Version None)
Quarter: 2008Q3

REPORT INFORMATION
  Report Type: 
  Country: None (occurrence: None)
  Receive Date: 20080912
  Receipt Date: 20080707
  Transmission Date: 20090109
  Serious: No
  Sender: FDA-Public Use
  Company Number: US-ABBOTT-08P-163-0461357-00

PATIENT
  Sex: Female
  Weight: 72.64 kg

DRUGS (6)
  1. HUMIRA [Suspect]
     Indication: PSORIATIC ARTHROPATHY
     Route: 058
     Dates: start: 20080301
  2. HUMIRA [Suspect]
     Indication: ANKYLOSING SPONDYLITIS
  3. METHOTREXATE [Concomitant]
     Indication: PSORIATIC ARTHROPATHY
     Dosage: 6 - 2.5 MILLIGRAMS PER WEEK
     Route: 048
     Dates: start: 20010101
  4. METHOTREXATE [Concomitant]
     Indication: ANKYLOSING SPONDYLITIS
  5. HYDROCODONE BITARTRATE [Concomitant]
     Indication: PAIN
     Dosage: 7.5 MILLIGRAM (2-3 PER DAY)
     Route: 048
     Dates: start: 20070101
  6. OXYMORPHONE HCL [Concomitant]
     Indication: PAIN
     Route: 048
     Dates: start: 20080627, end: 20080627

REACTIONS (6)
  - ASTHENIA [None]
  - BACK PAIN [None]
  - DYSPHAGIA [None]
  - PALLOR [None]
  - PHARYNGEAL OEDEMA [None]
  - RASH [None]
